FAERS Safety Report 12339076 (Version 1)
Quarter: 2016Q2

REPORT INFORMATION
  Report Type: Spontaneous
  Country: US (occurrence: US)
  Receive Date: 20160505
  Receipt Date: 20160505
  Transmission Date: 20160815
  Serious: No
  Sender: FDA-Public Use
  Company Number: US-RISING PHARMACEUTICALS, INC.-2016RIS00063

PATIENT
  Age: 62 Year
  Sex: Female
  Weight: 104.31 kg

DRUGS (5)
  1. METHIMAZOLE. [Suspect]
     Active Substance: METHIMAZOLE
     Dosage: 15 MG, 3X/DAY
     Route: 048
     Dates: start: 201409, end: 201411
  2. METHIMAZOLE. [Suspect]
     Active Substance: METHIMAZOLE
     Dosage: 5 MG, 3X/DAY
     Route: 048
     Dates: start: 201501
  3. METHIMAZOLE. [Suspect]
     Active Substance: METHIMAZOLE
     Dosage: 10 MG, 3X/DAY
     Route: 048
     Dates: start: 201408, end: 201409
  4. METHIMAZOLE. [Suspect]
     Active Substance: METHIMAZOLE
     Dosage: 10 MG, 3X/DAY
     Route: 048
     Dates: start: 201411, end: 201501
  5. METHIMAZOLE. [Suspect]
     Active Substance: METHIMAZOLE
     Indication: HYPERTHYROIDISM
     Dosage: 5 MG, 3X/DAY
     Route: 048
     Dates: start: 20140701, end: 201408

REACTIONS (2)
  - Alopecia [Not Recovered/Not Resolved]
  - Blood thyroid stimulating hormone increased [Unknown]

NARRATIVE: CASE EVENT DATE: 201409
